FAERS Safety Report 23740797 (Version 1)
Quarter: 2024Q2

REPORT INFORMATION
  Report Type: Report from Study
  Country: US (occurrence: US)
  Receive Date: 20240415
  Receipt Date: 20240415
  Transmission Date: 20240716
  Serious: No
  Sender: FDA-Public Use
  Company Number: US-BIOVITRUM-2024-US-005418

PATIENT
  Sex: Female

DRUGS (2)
  1. KINERET [Suspect]
     Active Substance: ANAKINRA
     Indication: Cryopyrin associated periodic syndrome
     Dosage: 100 MG 4 TIMES A DAY
  2. KINERET [Suspect]
     Active Substance: ANAKINRA
     Indication: Chronic infantile neurological cutaneous and articular syndrome
     Dosage: 100 MG ONCE DAILY
     Dates: start: 2020

REACTIONS (4)
  - Pharyngeal swelling [Unknown]
  - Injection site discomfort [Unknown]
  - Lip dry [Unknown]
  - Injection site mass [Unknown]

NARRATIVE: CASE EVENT DATE: 20210101
